FAERS Safety Report 23647739 (Version 1)
Quarter: 2024Q1

REPORT INFORMATION
  Report Type: Spontaneous
  Country: US (occurrence: US)
  Receive Date: 20240319
  Receipt Date: 20240319
  Transmission Date: 20240410
  Serious: Yes (Other)
  Sender: FDA-Public Use
  Company Number: US-SA-SAC20240314000977

PATIENT
  Age: 59 Year
  Sex: Female

DRUGS (31)
  1. DUPIXENT [Suspect]
     Active Substance: DUPILUMAB
     Indication: Dermatitis
     Dosage: 300 MG, QOW
     Route: 058
     Dates: start: 202402
  2. BETAMETHASONE [Concomitant]
     Active Substance: BETAMETHASONE\BETAMETHASONE DIPROPIONATE
  3. CLONAZEPAM [Concomitant]
     Active Substance: CLONAZEPAM
  4. COSENTYX [Concomitant]
     Active Substance: SECUKINUMAB
  5. DESONIDE [Concomitant]
     Active Substance: DESONIDE
  6. DICLOFENAC SODIUM [Concomitant]
     Active Substance: DICLOFENAC\DICLOFENAC SODIUM
  7. HALOPERIDOL [Concomitant]
     Active Substance: HALOPERIDOL
  8. HYDROXYZINE [Concomitant]
     Active Substance: HYDROXYZINE HYDROCHLORIDE
  9. IVERMECTIN [Concomitant]
     Active Substance: IVERMECTIN
  10. KETOCONAZOLE [Concomitant]
     Active Substance: KETOCONAZOLE
  11. LACTULOSE [Concomitant]
     Active Substance: LACTULOSE
  12. LINZESS [Concomitant]
     Active Substance: LINACLOTIDE
  13. LUBIPROSTONE [Concomitant]
     Active Substance: LUBIPROSTONE
  14. MECLIZINE HYDROCHLORIDE [Concomitant]
     Active Substance: MECLIZINE HYDROCHLORIDE
  15. OMEPRAZOLE [Concomitant]
     Active Substance: OMEPRAZOLE
  16. ONDANSETRON [Concomitant]
     Active Substance: ONDANSETRON
  17. OXYBUTYNIN [Concomitant]
     Active Substance: OXYBUTYNIN\OXYBUTYNIN CHLORIDE
  18. PANTOPRAZOLE [Concomitant]
     Active Substance: PANTOPRAZOLE
  19. POTASSIUM CHLORATE [Concomitant]
     Active Substance: POTASSIUM CHLORATE
  20. QUETIAPINE [Concomitant]
     Active Substance: QUETIAPINE
  21. TOBRAMYCIN AND DEXAMETHASONE [Concomitant]
     Active Substance: DEXAMETHASONE\TOBRAMYCIN
  22. TRAMADOL HCL [Concomitant]
     Active Substance: TRAMADOL HYDROCHLORIDE
  23. TRAZODONE [Concomitant]
     Active Substance: TRAZODONE HYDROCHLORIDE
  24. VITAMIN D3 [Concomitant]
     Active Substance: CHOLECALCIFEROL
  25. DICLOFENAC [Concomitant]
     Active Substance: DICLOFENAC
  26. ZOLPIDEM TARTRATE [Concomitant]
     Active Substance: ZOLPIDEM TARTRATE
  27. CICLOPIROX [Concomitant]
     Active Substance: CICLOPIROX\TOCOPHEROL
  28. HYDROCORTISONE [Concomitant]
     Active Substance: HYDROCORTISONE
  29. METHYLPREDNISOLONE [Concomitant]
     Active Substance: METHYLPREDNISOLONE
  30. METRONIDAZOLE [Concomitant]
     Active Substance: METRONIDAZOLE
  31. TRIAMCINOLONE [Concomitant]
     Active Substance: TRIAMCINOLONE

REACTIONS (4)
  - Cholecystectomy [Unknown]
  - Weight decreased [Not Recovered/Not Resolved]
  - Eye inflammation [Not Recovered/Not Resolved]
  - Product use in unapproved indication [Unknown]

NARRATIVE: CASE EVENT DATE: 20240101
